FAERS Safety Report 15399759 (Version 1)
Quarter: 2018Q3

REPORT INFORMATION
  Report Type: Spontaneous
  Country: CN (occurrence: CN)
  Receive Date: 20180918
  Receipt Date: 20180918
  Transmission Date: 20181010
  Serious: Yes (Death, Other)
  Sender: FDA-Public Use
  Company Number: CN-ASTRAZENECA-2018SF18703

PATIENT
  Sex: Male

DRUGS (1)
  1. TICAGRELOR. [Suspect]
     Active Substance: TICAGRELOR
     Indication: PERCUTANEOUS CORONARY INTERVENTION
     Dosage: DOSE UNKNOWN
     Route: 048
     Dates: start: 20180419

REACTIONS (2)
  - Cerebral haemorrhage [Fatal]
  - Coma [Unknown]

NARRATIVE: CASE EVENT DATE: 20180903
